FAERS Safety Report 5741522-0 (Version None)
Quarter: 2008Q2

REPORT INFORMATION
  Report Type: 
  Country: None (occurrence: None)
  Receive Date: 20080519
  Receipt Date: 20080327
  Transmission Date: 20081010
  Serious: Yes (Other)
  Sender: FDA-Public Use
  Company Number: DE-BAYER-200815998GPV

PATIENT

DRUGS (1)
  1. GADOLINIUM-DTPA [Suspect]
     Indication: NUCLEAR MAGNETIC RESONANCE IMAGING
     Route: 042

REACTIONS (2)
  - RENAL FAILURE CHRONIC [None]
  - SYSTEMIC INFLAMMATORY RESPONSE SYNDROME [None]
